FAERS Safety Report 19501096 (Version 4)
Quarter: 2021Q3

REPORT INFORMATION
  Report Type: Spontaneous
  Country: DE (occurrence: DE)
  Receive Date: 20210707
  Receipt Date: 20210816
  Transmission Date: 20211014
  Serious: Yes (Hospitalization)
  Sender: FDA-Public Use
  Company Number: DE-AUROBINDO-AUR-APL-2021-028089

PATIENT
  Age: 85 Year
  Sex: Male
  Weight: 60 kg

DRUGS (16)
  1. CYANOCOBALAMIN. [Concomitant]
     Active Substance: CYANOCOBALAMIN
     Indication: PRODUCT USED FOR UNKNOWN INDICATION
     Dosage: 1 MILLIGRAM, 1?0?0?0
     Route: 048
  2. RAMIPRIL TABLET [Suspect]
     Active Substance: RAMIPRIL
     Indication: PRODUCT USED FOR UNKNOWN INDICATION
     Dosage: 5 MILLIGRAM, 1?0?1?0
     Route: 048
  3. METOPROLOL. [Suspect]
     Active Substance: METOPROLOL
     Indication: PRODUCT USED FOR UNKNOWN INDICATION
     Dosage: 4.75 MILLIGRAM, TWO TIMES A DAY
     Route: 048
  4. TORASEMID [Suspect]
     Active Substance: TORSEMIDE
     Indication: PRODUCT USED FOR UNKNOWN INDICATION
     Dosage: 5 MILLIGRAM, ONCE A DAY
     Route: 048
  5. QUETIAPINE FILM?COATED TABLET [Suspect]
     Active Substance: QUETIAPINE
     Indication: PRODUCT USED FOR UNKNOWN INDICATION
     Dosage: 50 MILLIGRAM, ONCE A DAY
     Route: 048
  6. LEVETIRACETAM. [Concomitant]
     Active Substance: LEVETIRACETAM
     Indication: PRODUCT USED FOR UNKNOWN INDICATION
     Dosage: 1000 MILLIGRAM, TWO TIMES A DAY, 1?0?1?0
     Route: 048
  7. DABIGATRAN [Suspect]
     Active Substance: DABIGATRAN
     Dosage: 110 MILLIGRAM, TWO TIMES A DAY
     Route: 048
  8. METOPROLOL TARTRATE. [Suspect]
     Active Substance: METOPROLOL TARTRATE
     Indication: PRODUCT USED FOR UNKNOWN INDICATION
     Dosage: 47.5 MILLIGRAM
     Route: 048
  9. METAMIZOL [Concomitant]
     Active Substance: METAMIZOLE SODIUM
     Indication: PRODUCT USED FOR UNKNOWN INDICATION
     Dosage: 500 MILLIGRAM, FOUR TIMES/DAY
     Route: 048
  10. METAMIZOL [Concomitant]
     Active Substance: METAMIZOLE SODIUM
     Dosage: 500 MILLIGRAM
     Route: 048
  11. SITAGLIPTIN [Suspect]
     Active Substance: SITAGLIPTIN
     Indication: PRODUCT USED FOR UNKNOWN INDICATION
     Dosage: 100 MILLIGRAM, ONCE A DAY
     Route: 048
  12. COBAMAMIDE [Suspect]
     Active Substance: COBAMAMIDE
     Indication: PRODUCT USED FOR UNKNOWN INDICATION
     Dosage: 1 MILLIGRAM, ONCE A DAY
     Route: 048
  13. ATORVASTATIN [Concomitant]
     Active Substance: ATORVASTATIN
     Indication: PRODUCT USED FOR UNKNOWN INDICATION
     Dosage: 40 MILLIGRAM, ONCE A DAY
     Route: 048
  14. SACCHAROMYCES BOULARDII [Concomitant]
     Active Substance: SACCHAROMYCES CEREVISIAE
     Indication: PRODUCT USED FOR UNKNOWN INDICATION
     Dosage: 375 MILLIGRAM, ONCE A DAY
     Route: 048
  15. DABIGATRAN [Suspect]
     Active Substance: DABIGATRAN
     Indication: PRODUCT USED FOR UNKNOWN INDICATION
     Dosage: UNK
     Route: 048
  16. METILDIGOXIN [Concomitant]
     Active Substance: METILDIGOXIN
     Indication: PRODUCT USED FOR UNKNOWN INDICATION
     Dosage: 0.1 MILLIGRAM, 1?0?0?0
     Route: 048

REACTIONS (8)
  - Fall [Unknown]
  - Memory impairment [Unknown]
  - Pyrexia [Unknown]
  - Fracture [Unknown]
  - Micturition disorder [Unknown]
  - Balance disorder [Unknown]
  - Pollakiuria [Unknown]
  - General physical health deterioration [Unknown]
